FAERS Safety Report 19841201 (Version 1)
Quarter: 2021Q3

REPORT INFORMATION
  Report Type: Spontaneous
  Country: US (occurrence: US)
  Receive Date: 20210916
  Receipt Date: 20210916
  Transmission Date: 20211014
  Serious: No
  Sender: FDA-Public Use
  Company Number: US-PFIZER INC-202101169105

PATIENT

DRUGS (3)
  1. ZOLOFT [Suspect]
     Active Substance: SERTRALINE HYDROCHLORIDE
     Indication: PERINATAL DEPRESSION
     Dosage: UNK
     Dates: end: 202101
  2. ZOLOFT [Suspect]
     Active Substance: SERTRALINE HYDROCHLORIDE
     Indication: POSTPARTUM ANXIETY
  3. ZOLOFT [Suspect]
     Active Substance: SERTRALINE HYDROCHLORIDE
     Indication: HEADACHE

REACTIONS (10)
  - Insomnia [Unknown]
  - Decreased activity [Unknown]
  - Dizziness [Unknown]
  - Confusional state [Unknown]
  - Anxiety [Unknown]
  - Fatigue [Unknown]
  - Temperature intolerance [Unknown]
  - Mood swings [Unknown]
  - Headache [Unknown]
  - Feeling abnormal [Unknown]

NARRATIVE: CASE EVENT DATE: 2021
